FAERS Safety Report 8502715 (Version 3)
Quarter: 2012Q4

REPORT INFORMATION
  Report Type: 
  Country: DE (occurrence: US)
  Receive Date: 20120410
  Receipt Date: 20121112
  Transmission Date: 20130627
  Serious: Yes (Hospitalization)
  Sender: FDA-Public Use
  Company Number: US-BAYER-2012-032677

PATIENT
  Age: 26 Year
  Sex: Female
  Weight: 82.54 kg

DRUGS (9)
  1. OCELLA [Suspect]
     Dosage: UNK
     Dates: start: 20080811, end: 20090328
  2. AUGMENTIN [Concomitant]
     Indication: UTI
     Dosage: 875/125 mg
     Route: 048
  3. MOTRIN [Concomitant]
     Dosage: 400 mg, UNK
     Route: 048
  4. ONE A DAY [Concomitant]
  5. TORADOL [Concomitant]
     Dosage: 30 mg, UNK
     Route: 042
     Dates: start: 20090327
  6. CIPRO [Concomitant]
     Indication: UTI
     Dosage: 500 mg, BID
     Route: 048
  7. IBUPROFEN [Concomitant]
     Dosage: UNK
     Dates: start: 20090315, end: 20090318
  8. NAPROXEN [Concomitant]
     Dosage: UNK
     Dates: start: 20090325
  9. ANTIBIOTICS [Concomitant]
     Indication: URINARY TRACT INFECTION

REACTIONS (14)
  - Deep vein thrombosis [None]
  - Pulmonary embolism [None]
  - Pulmonary infarction [None]
  - Heart rate increased [None]
  - General physical health deterioration [None]
  - Emotional distress [None]
  - Anxiety [None]
  - General physical health deterioration [None]
  - Dyspnoea [None]
  - Chest pain [None]
  - Oxygen consumption increased [None]
  - Atelectasis [None]
  - Back pain [None]
  - Pain in extremity [None]
